FAERS Safety Report 13240310 (Version 1)
Quarter: 2017Q1

REPORT INFORMATION
  Report Type: Spontaneous
  Country: US (occurrence: US)
  Receive Date: 20170216
  Receipt Date: 20170216
  Transmission Date: 20170428
  Serious: No
  Sender: FDA-Public Use
  Company Number: US-RELYPSA-RLY2016003696

PATIENT
  Age: 86 Year
  Sex: Female

DRUGS (17)
  1. FENOFIBRATE. [Concomitant]
     Active Substance: FENOFIBRATE
  2. HYDROXYCHLOROQUINE SULFATE. [Concomitant]
     Active Substance: HYDROXYCHLOROQUINE SULFATE
  3. KIONEX [Concomitant]
     Active Substance: SODIUM POLYSTYRENE SULFONATE
  4. PREDNISONE. [Concomitant]
     Active Substance: PREDNISONE
  5. LANTUS [Concomitant]
     Active Substance: INSULIN GLARGINE
  6. ERGOCALCIFEROL. [Concomitant]
     Active Substance: ERGOCALCIFEROL
  7. LOVENOX [Concomitant]
     Active Substance: ENOXAPARIN SODIUM
  8. VITAMIN D2 [Concomitant]
     Active Substance: ERGOCALCIFEROL
  9. VELTASSA [Suspect]
     Active Substance: PATIROMER
     Dosage: 16.8 G, QD
     Route: 048
     Dates: start: 2016
  10. NOVOLOG [Concomitant]
     Active Substance: INSULIN ASPART
  11. VALSARTAN. [Concomitant]
     Active Substance: VALSARTAN
  12. VELTASSA [Suspect]
     Active Substance: PATIROMER
     Indication: HYPERKALAEMIA
     Dosage: 8.4 G, QD
     Route: 048
     Dates: start: 20161025, end: 2016
  13. FOLIC ACID. [Concomitant]
     Active Substance: FOLIC ACID
  14. L THYROXINE [Concomitant]
     Active Substance: LEVOTHYROXINE SODIUM
  15. DIGOXIN. [Concomitant]
     Active Substance: DIGOXIN
  16. TRICOR [Concomitant]
     Active Substance: FENOFIBRATE
  17. VOLTAREN [Concomitant]
     Active Substance: DICLOFENAC SODIUM

REACTIONS (2)
  - Dizziness [Unknown]
  - Constipation [Not Recovered/Not Resolved]

NARRATIVE: CASE EVENT DATE: 201610
